FAERS Safety Report 25703862 (Version 2)
Quarter: 2025Q3

REPORT INFORMATION
  Report Type: Report from Study
  Country: US (occurrence: US)
  Receive Date: 20250820
  Receipt Date: 20250916
  Transmission Date: 20251020
  Serious: No
  Sender: DECIPHERA PHARMACEUTICALS
  Company Number: US-DECIPHERA PHARMACEUTICALS LLC-2025US000947

PATIENT
  Age: 73 Year
  Sex: Male

DRUGS (1)
  1. QINLOCK [Suspect]
     Active Substance: RIPRETINIB
     Indication: Gastrointestinal stromal tumour
     Dosage: 150 MILLIGRAM, BID

REACTIONS (3)
  - Blood pressure abnormal [Recovered/Resolved]
  - Inappropriate schedule of product administration [Unknown]
  - Incorrect dosage administered [Unknown]
